FAERS Safety Report 13401900 (Version 2)
Quarter: 2017Q2

REPORT INFORMATION
  Report Type: Report from Study
  Country: US (occurrence: US)
  Receive Date: 20170404
  Receipt Date: 20170508
  Transmission Date: 20170830
  Serious: Yes (Other)
  Sender: FDA-Public Use
  Company Number: US-BIOGEN-2017BI00381824

PATIENT
  Age: 51 Year
  Sex: Female

DRUGS (1)
  1. TYSABRI [Suspect]
     Active Substance: NATALIZUMAB
     Indication: MULTIPLE SCLEROSIS
     Route: 065
     Dates: start: 20170301

REACTIONS (1)
  - Knee arthroplasty [Not Recovered/Not Resolved]

NARRATIVE: CASE EVENT DATE: 20170418
